FAERS Safety Report 23357503 (Version 1)
Quarter: 2023Q4

REPORT INFORMATION
  Report Type: Spontaneous
  Country: US (occurrence: None)
  Receive Date: 20231231
  Receipt Date: 20231231
  Transmission Date: 20240110
  Serious: Yes (Disabling)
  Sender: FDA-Public Use
  Company Number: None

PATIENT
  Age: 51 Year
  Sex: Female
  Weight: 65.25 kg

DRUGS (1)
  1. DEPO-PROVERA [Suspect]
     Active Substance: MEDROXYPROGESTERONE ACETATE
     Indication: Contraception
     Dosage: OTHER QUANTITY : 1 INJECTION(S);?OTHER FREQUENCY : 3 MONTHS;?
     Route: 058
     Dates: start: 19970815, end: 19971120

REACTIONS (6)
  - Anxiety [None]
  - Visual impairment [None]
  - Insomnia [None]
  - Fatigue [None]
  - Loss of personal independence in daily activities [None]
  - Weight decreased [None]

NARRATIVE: CASE EVENT DATE: 19971120
